FAERS Safety Report 24232591 (Version 1)
Quarter: 2024Q3

REPORT INFORMATION
  Report Type: Spontaneous
  Country: CN (occurrence: CN)
  Receive Date: 20240821
  Receipt Date: 20240821
  Transmission Date: 20241016
  Serious: Yes (Hospitalization)
  Sender: ACCORD
  Company Number: None

PATIENT
  Age: 69 Year
  Sex: Female
  Weight: 40 kg

DRUGS (6)
  1. TRASTUZUMAB [Suspect]
     Active Substance: TRASTUZUMAB
     Indication: Invasive breast carcinoma
     Dosage: 376 MILLIGRAM, Q3W
     Route: 042
     Dates: start: 20240714, end: 20240714
  2. PERJETA [Suspect]
     Active Substance: PERTUZUMAB
     Indication: Invasive breast carcinoma
     Dosage: 840 MILLIGRAM, Q3W
     Route: 042
     Dates: start: 20240714, end: 20240714
  3. DOCETAXEL [Suspect]
     Active Substance: DOCETAXEL\DOCETAXEL ANHYDROUS
     Indication: Invasive breast carcinoma
     Dosage: 112 MILLIGRAM, Q3W
     Route: 042
     Dates: start: 20240714, end: 20240714
  4. PERJETA [Suspect]
     Active Substance: PERTUZUMAB
     Indication: HER2 positive breast cancer
     Dosage: 840 MILLIGRAM, Q3W
     Dates: start: 20240714, end: 20240714
  5. TRASTUZUMAB [Suspect]
     Active Substance: TRASTUZUMAB
     Indication: HER2 positive breast cancer
     Dosage: 376 MILLIGRAM, Q3W
     Route: 042
     Dates: start: 20240714, end: 20240714
  6. DOCETAXEL [Suspect]
     Active Substance: DOCETAXEL\DOCETAXEL ANHYDROUS
     Indication: HER2 positive breast cancer
     Dosage: 112 MILLIGRAM, Q3W
     Route: 042
     Dates: start: 20240714, end: 20240714

REACTIONS (3)
  - Myelosuppression [Recovering/Resolving]
  - Drug eruption [Recovering/Resolving]
  - Hepatic function abnormal [Recovering/Resolving]

NARRATIVE: CASE EVENT DATE: 20240722
